FAERS Safety Report 5700749-4 (Version None)
Quarter: 2008Q2

REPORT INFORMATION
  Report Type: 
  Country: None (occurrence: None)
  Receive Date: 20080410
  Receipt Date: 20080303
  Transmission Date: 20081010
  Serious: No
  Sender: FDA-Public Use
  Company Number: A0712733A

PATIENT
  Age: 58 Year
  Sex: Female

DRUGS (3)
  1. TYKERB [Suspect]
     Indication: BREAST CANCER
     Dosage: 1250MG PER DAY
     Route: 048
     Dates: start: 20070901, end: 20080214
  2. XELODA [Suspect]
     Dosage: 6TAB PER DAY
     Route: 048
  3. ANTIBIOTIC [Concomitant]
     Route: 048

REACTIONS (10)
  - ABDOMINAL PAIN UPPER [None]
  - ADVERSE DRUG REACTION [None]
  - ANOREXIA [None]
  - ARTHRALGIA [None]
  - DIARRHOEA [None]
  - ERYTHEMA [None]
  - FATIGUE [None]
  - GAIT DISTURBANCE [None]
  - OEDEMA PERIPHERAL [None]
  - PAIN IN EXTREMITY [None]
